FAERS Safety Report 10194785 (Version 1)
Quarter: 2014Q2

REPORT INFORMATION
  Report Type: Spontaneous
  Country: US (occurrence: US)
  Receive Date: 20140526
  Receipt Date: 20140526
  Transmission Date: 20141212
  Serious: Yes (Other)
  Sender: FDA-Public Use
  Company Number: US-AMGEN-USASP2014038353

PATIENT
  Age: 57 Year
  Sex: Female

DRUGS (1)
  1. ENBREL [Suspect]
     Indication: RHEUMATOID ARTHRITIS
     Dosage: 50 MG, QWK
     Route: 065
     Dates: start: 20020101, end: 2012

REACTIONS (16)
  - Intervertebral disc protrusion [Not Recovered/Not Resolved]
  - Anxiety [Not Recovered/Not Resolved]
  - Hypertension [Not Recovered/Not Resolved]
  - Injection site pain [Recovered/Resolved]
  - Back pain [Not Recovered/Not Resolved]
  - Feeling abnormal [Not Recovered/Not Resolved]
  - Peripheral swelling [Not Recovered/Not Resolved]
  - Joint range of motion decreased [Not Recovered/Not Resolved]
  - Gait disturbance [Not Recovered/Not Resolved]
  - Arthralgia [Not Recovered/Not Resolved]
  - Musculoskeletal pain [Not Recovered/Not Resolved]
  - Pain [Not Recovered/Not Resolved]
  - Migraine [Not Recovered/Not Resolved]
  - Nerve injury [Not Recovered/Not Resolved]
  - Pain in extremity [Not Recovered/Not Resolved]
  - Condition aggravated [Not Recovered/Not Resolved]
